FAERS Safety Report 14842154 (Version 2)
Quarter: 2018Q2

REPORT INFORMATION
  Report Type: Report from Study
  Country: PE (occurrence: PE)
  Receive Date: 20180503
  Receipt Date: 20180619
  Transmission Date: 20180711
  Serious: Yes (Other)
  Sender: FDA-Public Use
  Company Number: PE-EMD SERONO-E2B_90041037

PATIENT
  Sex: Female

DRUGS (3)
  1. SAIZEN [Suspect]
     Active Substance: SOMATROPIN
     Indication: GROWTH HORMONE DEFICIENCY
     Dosage: UNKNOWN DOSAGE
     Route: 058
     Dates: start: 20171202
  2. SAIZEN [Suspect]
     Active Substance: SOMATROPIN
     Dosage: SAIZEN LIQUID 20MG (60UI), DOSE REDUCED
     Route: 058
     Dates: start: 20171212
  3. NEO DECAPEPTYL [Concomitant]
     Indication: PRODUCT USED FOR UNKNOWN INDICATION
     Dates: start: 201802

REACTIONS (1)
  - Acral overgrowth [Unknown]
